FAERS Safety Report 5732591-2 (Version None)
Quarter: 2008Q2

REPORT INFORMATION
  Report Type: 
  Country: None (occurrence: None)
  Receive Date: 20080507
  Receipt Date: 20080419
  Transmission Date: 20081010
  Serious: Yes (Hospitalization)
  Sender: FDA-Public Use
  Company Number: 002#2#2008-00305

PATIENT
  Age: 42 Year
  Sex: Female

DRUGS (14)
  1. NIRAVAM [Suspect]
     Indication: PANIC ATTACK
     Dosage: 1MG
  2. AMLODIPINE [Concomitant]
  3. SERTRALINE [Concomitant]
  4. FLEXERIL [Concomitant]
  5. LORTAB [Concomitant]
  6. VALIUM [Concomitant]
  7. ATIVAN [Concomitant]
  8. CRESTOR [Concomitant]
  9. TRICOR [Concomitant]
  10. PLAVIX [Concomitant]
  11. PREVACID [Concomitant]
  12. LOPRESSOR [Concomitant]
  13. SYNTHROID [Concomitant]
  14. INSULIN [Concomitant]

REACTIONS (2)
  - LEG AMPUTATION [None]
  - MYOCARDIAL INFARCTION [None]
